FAERS Safety Report 5734861-0 (Version None)
Quarter: 2008Q2

REPORT INFORMATION
  Report Type: 
  Country: None (occurrence: None)
  Receive Date: 20080508
  Receipt Date: 20080508
  Transmission Date: 20081010
  Serious: Yes (Other)
  Sender: FDA-Public Use
  Company Number: None

PATIENT
  Sex: Female
  Weight: 68.0396 kg

DRUGS (1)
  1. BONIVA [Suspect]
     Indication: OSTEOPENIA
     Dosage: 150 MG ONCE-A-MONTH PO
     Route: 048
     Dates: start: 20071215, end: 20080415

REACTIONS (4)
  - BACK PAIN [None]
  - GINGIVAL PAIN [None]
  - MUSCULOSKELETAL CHEST PAIN [None]
  - PAIN IN JAW [None]
